FAERS Safety Report 7941796-1 (Version None)
Quarter: 2011Q4

REPORT INFORMATION
  Report Type: 
  Country: None (occurrence: None)
  Receive Date: 20111128
  Receipt Date: 20111121
  Transmission Date: 20120403
  Serious: Yes (Hospitalization, Other)
  Sender: FDA-Public Use
  Company Number: CN-PFIZER INC-2011287802

PATIENT
  Age: 82 Year
  Sex: Male

DRUGS (3)
  1. NIFEDIPINE [Suspect]
     Dosage: 30 MG, 2X/DAY
     Route: 048
     Dates: start: 20060930, end: 20061031
  2. NIFEDIPINE [Suspect]
     Dosage: 30 MG, 1X/DAY
     Route: 048
     Dates: start: 20061101
  3. NIFEDIPINE [Suspect]
     Indication: HYPERTENSION
     Dosage: 30 MG, 1X/DAY
     Route: 048
     Dates: start: 20060301, end: 20060929

REACTIONS (6)
  - BLOOD PRESSURE INADEQUATELY CONTROLLED [None]
  - PERICARDIAL EFFUSION [None]
  - PLEURAL EFFUSION [None]
  - GENERALISED OEDEMA [None]
  - PALPITATIONS [None]
  - DYSPNOEA [None]
